FAERS Safety Report 16418500 (Version 3)
Quarter: 2024Q1

REPORT INFORMATION
  Report Type: Other
  Country: AT (occurrence: None)
  Receive Date: 20190612
  Receipt Date: 20240223
  Transmission Date: 20240409
  Serious: Yes (Other)
  Sender: FDA-Public Use
  Company Number: AT-ROCHE-2333808

PATIENT
  Age: 59 Year
  Sex: Female
  Weight: 65 kg

DRUGS (79)
  1. HERCEPTIN [Suspect]
     Active Substance: TRASTUZUMAB
     Indication: HER2 positive breast cancer
     Route: 041
     Dates: start: 20180627, end: 20180627
  2. HERCEPTIN [Suspect]
     Active Substance: TRASTUZUMAB
     Route: 042
     Dates: start: 20180717, end: 20181217
  3. HERCEPTIN [Suspect]
     Active Substance: TRASTUZUMAB
     Route: 042
     Dates: start: 20190205, end: 20201111
  4. HERCEPTIN [Suspect]
     Active Substance: TRASTUZUMAB
     Route: 042
     Dates: start: 20201202, end: 20220422
  5. PERJETA [Suspect]
     Active Substance: PERTUZUMAB
     Indication: HER2 positive breast cancer
     Route: 042
     Dates: start: 20180627, end: 20180627
  6. PERJETA [Suspect]
     Active Substance: PERTUZUMAB
     Route: 042
     Dates: start: 20180717, end: 20181217
  7. PERJETA [Suspect]
     Active Substance: PERTUZUMAB
     Route: 042
     Dates: start: 20190205, end: 20201111
  8. PERJETA [Suspect]
     Active Substance: PERTUZUMAB
     Route: 042
     Dates: start: 20201202, end: 20220422
  9. TAXOTERE [Suspect]
     Active Substance: DOCETAXEL
     Indication: HER2 positive breast cancer
     Dosage: MOST RECENT DOSE 05/NOV/2018
     Route: 042
     Dates: start: 20180627
  10. LETROZOLE [Suspect]
     Active Substance: LETROZOLE
     Indication: HER2 positive breast cancer
     Route: 048
     Dates: start: 20181130, end: 202211
  11. ESOMEPRAZOLE [Concomitant]
     Active Substance: ESOMEPRAZOLE
     Dosage: ONGOING = CHECKED
     Dates: start: 20180625
  12. ZOFRAN [Concomitant]
     Active Substance: ONDANSETRON HYDROCHLORIDE
     Dosage: ONGOING = CHECKED
     Dates: start: 20180626
  13. DEXAMETHASONE [Concomitant]
     Active Substance: DEXAMETHASONE
     Dosage: ONGOING = CHECKED
     Dates: start: 20180626
  14. DIPHENHYDRAMINE HYDROCHLORIDE [Concomitant]
     Active Substance: DIPHENHYDRAMINE HYDROCHLORIDE
     Dosage: ONGOING = CHECKED
     Dates: start: 20180626
  15. NEXIUM [Concomitant]
     Active Substance: ESOMEPRAZOLE MAGNESIUM
     Dosage: ONGOING = CHECKED
     Dates: start: 20180719
  16. DICLOFENAC [Concomitant]
     Active Substance: DICLOFENAC
     Dosage: ONGOING = CHECKED
     Dates: start: 20180816
  17. CLINDAMYCIN [Concomitant]
     Active Substance: CLINDAMYCIN
     Dosage: ONGOING = CHECKED
     Dates: start: 20190205
  18. DAFLON [Concomitant]
     Dosage: ONGOING = CHECKED
     Dates: start: 20190509
  19. CHOLECALCIFEROL [Concomitant]
     Active Substance: CHOLECALCIFEROL
     Dosage: ONGOING = CHECKED
     Dates: start: 20180629
  20. XGEVA [Concomitant]
     Active Substance: DENOSUMAB
  21. LIPEGFILGRASTIM [Concomitant]
     Active Substance: LIPEGFILGRASTIM
  22. ACETAMINOPHEN [Concomitant]
     Active Substance: ACETAMINOPHEN
  23. DEXPANTHENOL [Concomitant]
     Active Substance: DEXPANTHENOL
  24. POLYETHYLENE GLYCOL 4000 [Concomitant]
     Active Substance: POLYETHYLENE GLYCOL 4000
  25. DORMICUM [Concomitant]
  26. PROPOFOL [Concomitant]
     Active Substance: PROPOFOL
  27. EMEND [Concomitant]
     Active Substance: APREPITANT
  28. CEFUROXIME [Concomitant]
     Active Substance: CEFUROXIME
  29. VOLTAREN [Concomitant]
     Active Substance: DICLOFENAC SODIUM
  30. NYSTATIN [Concomitant]
     Active Substance: NYSTATIN
  31. FLUCLOXACILLIN [Concomitant]
     Active Substance: FLUCLOXACILLIN
  32. BISOPROLOL FUMARATE [Concomitant]
     Active Substance: BISOPROLOL FUMARATE
  33. PULMICORT TURBUHALER [Concomitant]
     Active Substance: BUDESONIDE
  34. PASPERTIN [Concomitant]
  35. BRICANYL [Concomitant]
     Active Substance: TERBUTALINE SULFATE
  36. SUFENTANIL [Concomitant]
     Active Substance: SUFENTANIL
  37. GASTROMIRO [Concomitant]
  38. NEOSTIGMINE [Concomitant]
     Active Substance: NEOSTIGMINE
  39. MEROPENEM [Concomitant]
     Active Substance: MEROPENEM
  40. LINEZOLID [Concomitant]
     Active Substance: LINEZOLID
  41. FENTANYL [Concomitant]
     Active Substance: FENTANYL\FENTANYL CITRATE
  42. KETANEST [Concomitant]
  43. ERYTHROMYCIN [Concomitant]
     Active Substance: ERYTHROMYCIN
  44. ALBUMIN HUMAN [Concomitant]
     Active Substance: ALBUMIN HUMAN
  45. BERODUALIN [Concomitant]
  46. HYPOTRIT [Concomitant]
  47. ELOZELL FORTE [Concomitant]
  48. LASIX [Concomitant]
     Active Substance: FUROSEMIDE
  49. FLUCONAZOLE [Concomitant]
     Active Substance: FLUCONAZOLE
  50. PERFALGAN [Concomitant]
     Active Substance: ACETAMINOPHEN
  51. OXAZEPAM [Concomitant]
     Active Substance: OXAZEPAM
  52. CEFEPIME [Concomitant]
     Active Substance: CEFEPIME HYDROCHLORIDE
  53. NOVALGIN (METAMIZOLE SODIUM) [Concomitant]
     Active Substance: METAMIZOLE SODIUM
  54. TEMESTA [Concomitant]
  55. FRAGMIN [Concomitant]
     Active Substance: DALTEPARIN SODIUM
  56. INDERAL [Concomitant]
     Active Substance: PROPRANOLOL HYDROCHLORIDE
  57. ACEMIN (AUSTRIA) [Concomitant]
  58. FUROSEMIDE\SPIRONOLACTONE [Concomitant]
     Active Substance: FUROSEMIDE\SPIRONOLACTONE
  59. SEROQUEL [Concomitant]
     Active Substance: QUETIAPINE FUMARATE
  60. XIPAMIDE [Concomitant]
     Active Substance: XIPAMIDE
  61. TRAZODONE HYDROCHLORIDE [Concomitant]
     Active Substance: TRAZODONE HYDROCHLORIDE
  62. MAGNESIUM CARBONATE\MAGNESIUM OXIDE [Concomitant]
     Active Substance: MAGNESIUM CARBONATE\MAGNESIUM OXIDE
  63. PANTOPRAZOLE SODIUM [Concomitant]
     Active Substance: PANTOPRAZOLE SODIUM
  64. ETILEFRINE HYDROCHLORIDE [Concomitant]
     Active Substance: ETILEFRINE HYDROCHLORIDE
  65. METASOL [Concomitant]
     Active Substance: BENZOPHENONE\HYDROQUINONE
  66. GENTAMICIN SULFATE [Concomitant]
     Active Substance: GENTAMICIN SULFATE
  67. NALOXEGOL OXALATE [Concomitant]
     Active Substance: NALOXEGOL OXALATE
  68. NOREPINEPHRINE HYDROCHLORIDE, (+/-)- [Concomitant]
     Active Substance: NOREPINEPHRINE HYDROCHLORIDE, (+/-)-
  69. MORPHINE [Concomitant]
     Active Substance: MORPHINE
  70. KALIUM RETARD [Concomitant]
  71. POLYETHYLENE GLYCOL 3350\POTASSIUM CHLORIDE\SODIUM BICARBONATE\SODIUM [Concomitant]
     Active Substance: POLYETHYLENE GLYCOL 3350\POTASSIUM CHLORIDE\SODIUM BICARBONATE\SODIUM CHLORIDE
  72. CLONIDINE [Concomitant]
     Active Substance: CLONIDINE
  73. CLONIDINE [Concomitant]
     Active Substance: CLONIDINE
  74. NEPRESOL [Concomitant]
  75. MELPERONE HYDROCHLORIDE [Concomitant]
     Active Substance: MELPERONE HYDROCHLORIDE
  76. SERTRALINE HYDROCHLORIDE [Concomitant]
     Active Substance: SERTRALINE HYDROCHLORIDE
  77. ASCORBIC ACID\CALCIUM PHOSPHATE\CHOLECALCIFEROL\CITRIC ACID MONOHYDRAT [Concomitant]
     Active Substance: ASCORBIC ACID\CALCIUM PHOSPHATE\CHOLECALCIFEROL\CITRIC ACID MONOHYDRATE
  78. MELATONIN [Concomitant]
     Active Substance: MELATONIN
  79. VALERIAN [Concomitant]
     Active Substance: VALERIAN

REACTIONS (2)
  - Clostridial infection [Recovered/Resolved]
  - Diarrhoea [Recovered/Resolved]

NARRATIVE: CASE EVENT DATE: 20190415
